FAERS Safety Report 6671600-3 (Version None)
Quarter: 2010Q2

REPORT INFORMATION
  Report Type: 
  Country: None (occurrence: None)
  Receive Date: 20100407
  Receipt Date: 20100325
  Transmission Date: 20101027
  Serious: Yes (Hospitalization)
  Sender: FDA-Public Use
  Company Number: FR-PFIZER INC-2010042758

PATIENT
  Age: 47 Year
  Sex: Female

DRUGS (24)
  1. HYDROXYZINE HCL [Suspect]
     Dosage: 60 MG, 1X/DAY
     Route: 042
     Dates: start: 20100220, end: 20100220
  2. AUGMENTIN '125' [Suspect]
     Dosage: 6 MG, DAILY
     Route: 042
     Dates: start: 20100219, end: 20100224
  3. OMEPRAZOLE [Suspect]
     Dosage: 40 MG, DAILY
     Route: 042
     Dates: start: 20100219, end: 20100302
  4. CANCIDAS [Suspect]
     Dosage: 50 MG, DAILY
     Route: 042
     Dates: start: 20100222, end: 20100225
  5. SUFENTANIL CITRATE [Suspect]
     Dosage: UNK
     Route: 042
     Dates: start: 20100219, end: 20100302
  6. ACUPAN [Suspect]
     Dosage: UNK
     Route: 042
     Dates: start: 20100220, end: 20100221
  7. HUMALOG [Suspect]
     Dosage: UNK
     Route: 058
     Dates: start: 20100219
  8. LOVENOX [Suspect]
     Dosage: UNK
     Route: 058
     Dates: start: 20100220, end: 20100226
  9. GENTALLINE [Suspect]
     Dosage: 300 MG, DAILY
     Route: 042
     Dates: start: 20100222, end: 20100223
  10. NIMBEX [Suspect]
     Dosage: UNK
     Route: 042
     Dates: start: 20100222, end: 20100224
  11. VECTARION [Suspect]
     Dosage: UNK
     Route: 042
     Dates: start: 20100222, end: 20100224
  12. KETAMINE [Suspect]
     Dosage: UNK
     Route: 042
     Dates: start: 20100219, end: 20100219
  13. ACTRAPID [Suspect]
     Dosage: UNK
     Route: 042
     Dates: start: 20100219, end: 20100219
  14. ROCURONIUM BROMIDE [Suspect]
     Dosage: 170 MG, DAILY
     Route: 042
     Dates: start: 20100219, end: 20100219
  15. ATRACURIUM BESILATE [Suspect]
     Dosage: 200 MG, DAILY
     Route: 042
     Dates: start: 20100219, end: 20100219
  16. HYPNOVEL [Suspect]
     Dosage: 1 MG, DAILY
     Route: 042
     Dates: start: 20100219, end: 20100219
  17. EPHEDRINE [Suspect]
     Dosage: UNK
     Route: 042
     Dates: start: 20100219, end: 20100219
  18. PROPOFOL [Suspect]
     Dosage: UNK
     Route: 042
     Dates: start: 20100219, end: 20100302
  19. METFORMIN HYDROCHLORIDE [Concomitant]
     Dosage: 150 MG, 2X/DAY
  20. ELISOR [Concomitant]
     Dosage: 20 MG, 1X/DAY
  21. ANAFRANIL [Concomitant]
     Dosage: 75 MG, 2X/DAY
  22. SERESTA [Concomitant]
     Dosage: 50 MG, 3X/DAY
  23. LARGACTIL [Concomitant]
     Dosage: 25 MG, 1X/DAY
  24. TARDYFERON [Concomitant]
     Dosage: 80 MG, 1X/DAY

REACTIONS (5)
  - ACUTE RESPIRATORY DISTRESS SYNDROME [None]
  - ANURIA [None]
  - PLEURAL EFFUSION [None]
  - SEPTIC SHOCK [None]
  - STEVENS-JOHNSON SYNDROME [None]
